FAERS Safety Report 13829796 (Version 1)
Quarter: 2017Q3

REPORT INFORMATION
  Report Type: Spontaneous
  Country: US (occurrence: US)
  Receive Date: 20170803
  Receipt Date: 20170803
  Transmission Date: 20171127
  Serious: Yes (Death)
  Sender: FDA-Public Use
  Company Number: PHHY2017US111886

PATIENT

DRUGS (1)
  1. TRAMETINIB [Suspect]
     Active Substance: TRAMETINIB
     Indication: BILE DUCT CANCER
     Dosage: 2 MG, QD
     Route: 065

REACTIONS (3)
  - Vomiting [Fatal]
  - Dehydration [Fatal]
  - Product use in unapproved indication [Unknown]
